FAERS Safety Report 8441696-7 (Version None)
Quarter: 2012Q2

REPORT INFORMATION
  Report Type: 
  Country: None (occurrence: None)
  Receive Date: 20120323
  Receipt Date: 20110906
  Transmission Date: 20120825
  Serious: Yes (Other)
  Sender: FDA-Public Use
  Company Number: 163-21880-11062054

PATIENT
  Age: 72 Year
  Sex: Female

DRUGS (5)
  1. REVLIMID [Suspect]
     Indication: MULTIPLE MYELOMA
     Dosage: 25 MG, 1 IN 1 D, PO   15 MG, 1 IN 1 D, PO   10 MG, 1 IN 1 D, PO   15 MG, QOD, PO
     Route: 048
     Dates: start: 20110509, end: 20110516
  2. REVLIMID [Suspect]
     Indication: MULTIPLE MYELOMA
     Dosage: 25 MG, 1 IN 1 D, PO   15 MG, 1 IN 1 D, PO   10 MG, 1 IN 1 D, PO   15 MG, QOD, PO
     Route: 048
     Dates: start: 20110613
  3. REVLIMID [Suspect]
     Indication: MULTIPLE MYELOMA
     Dosage: 25 MG, 1 IN 1 D, PO   15 MG, 1 IN 1 D, PO   10 MG, 1 IN 1 D, PO   15 MG, QOD, PO
     Route: 048
     Dates: start: 20080814, end: 20110418
  4. REVLIMID [Suspect]
     Indication: MULTIPLE MYELOMA
     Dosage: 25 MG, 1 IN 1 D, PO   15 MG, 1 IN 1 D, PO   10 MG, 1 IN 1 D, PO   15 MG, QOD, PO
     Route: 048
     Dates: start: 20110523
  5. DEXAMETHASONE [Concomitant]

REACTIONS (2)
  - WHITE BLOOD CELL COUNT DECREASED [None]
  - NEUTROPHIL COUNT DECREASED [None]
